FAERS Safety Report 5258466-3 (Version None)
Quarter: 2007Q1

REPORT INFORMATION
  Report Type: 
  Country: None (occurrence: None)
  Receive Date: 20070308
  Receipt Date: 20070227
  Transmission Date: 20070707
  Serious: Yes (Other)
  Sender: FDA-Public Use
  Company Number: PHFR2006GB03621

PATIENT
  Sex: Female

DRUGS (2)
  1. ZOMETA [Suspect]
     Indication: METASTASES TO BONE
     Dosage: UNK, UNK
     Route: 065
     Dates: start: 20050101, end: 20061101
  2. ARIMIDEX [Concomitant]
     Indication: BREAST CANCER

REACTIONS (3)
  - JAW DISORDER [None]
  - OSTEONECROSIS [None]
  - SINUS DISORDER [None]
